FAERS Safety Report 6245233-7 (Version None)
Quarter: 2009Q2

REPORT INFORMATION
  Report Type: 
  Country: None (occurrence: None)
  Receive Date: 20090623
  Receipt Date: 20090623
  Transmission Date: 20091009
  Serious: Yes (Hospitalization, Other)
  Sender: FDA-Public Use
  Company Number: None

PATIENT
  Age: 49 Year
  Sex: Female
  Weight: 90.7194 kg

DRUGS (1)
  1. VANCOMYCIN [Suspect]
     Indication: INFECTION
     Dosage: 1 GM BID
     Route: 041
     Dates: start: 20090607, end: 20090611

REACTIONS (9)
  - CANDIDIASIS [None]
  - CELLULITIS [None]
  - DRUG HYPERSENSITIVITY [None]
  - MALAISE [None]
  - OROPHARYNGEAL BLISTERING [None]
  - RASH [None]
  - RED MAN SYNDROME [None]
  - SKIN EXFOLIATION [None]
  - STEVENS-JOHNSON SYNDROME [None]
